FAERS Safety Report 12145499 (Version 2)
Quarter: 2016Q1

REPORT INFORMATION
  Report Type: Report from Study
  Country: DE (occurrence: DE)
  Receive Date: 20160304
  Receipt Date: 20160308
  Transmission Date: 20160526
  Serious: Yes (Death, Other)
  Sender: FDA-Public Use
  Company Number: DE-TEVA-628192GER

PATIENT
  Age: 58 Year
  Sex: Female

DRUGS (14)
  1. RAMIPRIL BETA 2,5 [Concomitant]
     Dosage: 1-0-1
     Dates: start: 20150630
  2. SIMVABETA 40 [Concomitant]
     Dosage: 0-0-1
  3. PANTOPRAZOLE SODIUM. [Concomitant]
     Active Substance: PANTOPRAZOLE SODIUM
     Dosage: BY NIGHT
  4. MERIMONO 2 MG [Concomitant]
  5. RAMIPRIL BETA 2,5 [Concomitant]
     Dosage: 2.5 - 0 - 1.25 MG
  6. TILIDIN N 150/12 MG [Concomitant]
     Indication: FIBROMYALGIA
     Dosage: 1 DSF= 150 MG TILIDINHYDROCHLORID AND 12 MG NALOXONHYDROCHLORID, 1-1-1
     Route: 048
  7. CIPRALEX 20 MG [Concomitant]
  8. COPAXONE [Suspect]
     Active Substance: GLATIRAMER ACETATE
     Indication: MULTIPLE SCLEROSIS
     Route: 058
     Dates: start: 20090824, end: 20160102
  9. ASS 100 [Concomitant]
     Active Substance: ASPIRIN
     Dosage: 0-1-0
  10. PK-MERZ 200 [Concomitant]
     Dosage: 1-0-0
  11. ESCITALOPRAM BETA 20 [Concomitant]
     Dosage: 2-0-0
  12. AMANTADIN 100 MG [Concomitant]
     Indication: MULTIPLE SCLEROSIS
     Dosage: 100 MILLIGRAM DAILY;
  13. VALORON N 150/12 MG [Concomitant]
     Indication: BACK PAIN
     Dosage: REGULARLY 3
  14. L-THYROXIN 75 [Concomitant]
     Active Substance: LEVOTHYROXINE

REACTIONS (1)
  - Bronchial carcinoma [Fatal]

NARRATIVE: CASE EVENT DATE: 20160102
